FAERS Safety Report 14978641 (Version 3)
Quarter: 2018Q2

REPORT INFORMATION
  Report Type: Spontaneous
  Country: CN (occurrence: CN)
  Receive Date: 20180606
  Receipt Date: 20180614
  Transmission Date: 20180711
  Serious: Yes (Other)
  Sender: FDA-Public Use
  Company Number: CN-ROCHE-2134389

PATIENT
  Age: 73 Year
  Sex: Male
  Weight: 74 kg

DRUGS (5)
  1. ACTILYSE [Suspect]
     Active Substance: ALTEPLASE
     Indication: CEREBRAL INFARCTION
     Route: 042
     Dates: start: 20180526, end: 20180526
  2. DANHONG [Concomitant]
     Active Substance: HERBALS
  3. BUTYLPHTHALIDE [Concomitant]
     Active Substance: BUTYLPHTHALIDE
     Route: 042
     Dates: start: 20180526
  4. ACTILYSE [Suspect]
     Active Substance: ALTEPLASE
     Route: 050
  5. DANSHEN [Concomitant]
     Active Substance: HERBALS
     Route: 042
     Dates: start: 20180526, end: 20180527

REACTIONS (2)
  - Blood fibrinogen decreased [Recovered/Resolved]
  - Off label use [Unknown]

NARRATIVE: CASE EVENT DATE: 20180527
